FAERS Safety Report 25772410 (Version 1)
Quarter: 2025Q3

REPORT INFORMATION
  Report Type: Report from Study
  Country: TR (occurrence: TR)
  Receive Date: 20250908
  Receipt Date: 20250908
  Transmission Date: 20251021
  Serious: Yes (Death, Hospitalization, Other)
  Sender: ROCHE
  Company Number: TR-ROCHE-10000378146

PATIENT

DRUGS (12)
  1. RITUXIMAB [Suspect]
     Active Substance: RITUXIMAB
     Indication: Multiple sclerosis
     Route: 065
  2. RITUXIMAB [Suspect]
     Active Substance: RITUXIMAB
     Indication: Neuromyelitis optica spectrum disorder
  3. RITUXIMAB [Suspect]
     Active Substance: RITUXIMAB
     Indication: Myasthenia gravis
  4. RITUXIMAB [Suspect]
     Active Substance: RITUXIMAB
     Indication: Chronic inflammatory demyelinating polyradiculoneuropathy
  5. RITUXIMAB [Suspect]
     Active Substance: RITUXIMAB
     Indication: Encephalitis autoimmune
  6. RITUXIMAB [Suspect]
     Active Substance: RITUXIMAB
     Indication: Paraneoplastic syndrome
  7. OCRELIZUMAB [Suspect]
     Active Substance: OCRELIZUMAB
     Indication: Multiple sclerosis
     Route: 065
  8. OCRELIZUMAB [Suspect]
     Active Substance: OCRELIZUMAB
     Indication: Neuromyelitis optica spectrum disorder
  9. OCRELIZUMAB [Suspect]
     Active Substance: OCRELIZUMAB
     Indication: Myasthenia gravis
  10. OCRELIZUMAB [Suspect]
     Active Substance: OCRELIZUMAB
     Indication: Chronic inflammatory demyelinating polyradiculoneuropathy
  11. OCRELIZUMAB [Suspect]
     Active Substance: OCRELIZUMAB
     Indication: Encephalitis autoimmune
  12. OCRELIZUMAB [Suspect]
     Active Substance: OCRELIZUMAB
     Indication: Paraneoplastic syndrome

REACTIONS (7)
  - Urinary tract infection [Unknown]
  - Respiratory tract infection [Unknown]
  - Skin infection [Unknown]
  - Gastrointestinal infection [Unknown]
  - Infection [Fatal]
  - Lymphopenia [Unknown]
  - Hypogammaglobulinaemia [Unknown]
